FAERS Safety Report 24023368 (Version 1)
Quarter: 2024Q2

REPORT INFORMATION
  Report Type: Report from Study
  Country: RS (occurrence: RS)
  Receive Date: 20240627
  Receipt Date: 20240627
  Transmission Date: 20240715
  Serious: No
  Sender: FDA-Public Use
  Company Number: RS-ROCHE-3472501

PATIENT
  Age: 77 Year
  Sex: Male

DRUGS (4)
  1. ALECTINIB [Suspect]
     Active Substance: ALECTINIB
     Indication: Non-small cell lung cancer
     Route: 048
     Dates: start: 20220228
  2. ALECTINIB [Suspect]
     Active Substance: ALECTINIB
     Route: 048
     Dates: start: 20200708
  3. PANCEF (SERBIA) [Concomitant]
     Indication: Leukocytosis
     Route: 048
     Dates: start: 20220608, end: 20220614
  4. PANCEF (SERBIA) [Concomitant]
     Route: 048
     Dates: start: 20220413, end: 20220419

REACTIONS (3)
  - Nausea [Recovered/Resolved]
  - C-reactive protein increased [Recovered/Resolved]
  - Leukocytosis [Recovered/Resolved]

NARRATIVE: CASE EVENT DATE: 20220412
